FAERS Safety Report 9106177 (Version 1)
Quarter: 2013Q1

REPORT INFORMATION
  Report Type: Report from Study
  Country: FR (occurrence: BR)
  Receive Date: 20130220
  Receipt Date: 20130220
  Transmission Date: 20140127
  Serious: Yes (Hospitalization, Other)
  Sender: FDA-Public Use
  Company Number: FR-009507513-1102FRA00171

PATIENT
  Age: 35 Year
  Sex: Male
  Weight: 60 kg

DRUGS (11)
  1. RALTEGRAVIR POTASSIUM [Suspect]
     Indication: HIV INFECTION
     Dosage: 400 MG, BID
     Route: 048
     Dates: start: 20110210
  2. LAMIVUDINE [Suspect]
     Indication: HIV INFECTION
     Dosage: 300 MG, QD
     Route: 048
     Dates: start: 20110210
  3. TENOFOVIR [Suspect]
     Indication: HIV INFECTION
     Dosage: 300 MG, QD
     Route: 048
     Dates: start: 20110210
  4. PYRIDOXINE [Concomitant]
     Indication: PROPHYLAXIS
     Dosage: 40 MG, QD
     Route: 048
     Dates: start: 20110207
  5. AZITHROMYCIN [Concomitant]
     Indication: SINUSITIS
     Dosage: 500 MG, QD
     Route: 048
     Dates: start: 20110217
  6. DEXCHLORPHENIRAMINE MALEATE [Concomitant]
     Indication: SINUSITIS
     Dosage: 3 MG, QD
     Route: 048
     Dates: start: 20110217
  7. DICLOFENAC POTASSIUM [Concomitant]
     Indication: SINUSITIS
     Dosage: 50 MG, QD
     Route: 048
     Dates: start: 20110217
  8. RIFAMPIN [Concomitant]
     Indication: TUBERCULOSIS
     Dosage: 600 MG, QD
     Route: 048
     Dates: start: 20101216
  9. ISONIAZID [Concomitant]
     Indication: TUBERCULOSIS
     Dosage: 300 MG, QD
     Route: 048
     Dates: start: 20101216
  10. PYRAZINAMIDE [Concomitant]
     Indication: TUBERCULOSIS
     Dosage: 1600 MG, QD
     Route: 048
     Dates: start: 20101216
  11. ETHAMBUTOL HYDROCHLORIDE [Concomitant]
     Indication: TUBERCULOSIS
     Dosage: 1100 MG, QD
     Route: 048
     Dates: start: 20101216

REACTIONS (4)
  - Immune reconstitution inflammatory syndrome [Recovered/Resolved]
  - Pulmonary sepsis [Recovered/Resolved]
  - Pneumonia bacterial [Recovered/Resolved]
  - Pneumocystis jirovecii infection [Recovered/Resolved]
